FAERS Safety Report 22015263 (Version 4)
Quarter: 2023Q2

REPORT INFORMATION
  Report Type: Report from Study
  Country: AU (occurrence: AU)
  Receive Date: 20230221
  Receipt Date: 20230614
  Transmission Date: 20230721
  Serious: Yes (Hospitalization)
  Sender: FDA-Public Use
  Company Number: AU-TAKEDA-2021TUS017932

PATIENT
  Age: 49 Year
  Sex: Female

DRUGS (32)
  1. TEDUGLUTIDE [Suspect]
     Active Substance: TEDUGLUTIDE
     Indication: Short-bowel syndrome
     Dosage: 0.28 MILLILITER, QD
     Route: 058
     Dates: start: 20210228
  2. TEDUGLUTIDE [Suspect]
     Active Substance: TEDUGLUTIDE
     Indication: Short-bowel syndrome
     Dosage: 0.28 MILLILITER, QD
     Route: 058
     Dates: start: 20210228
  3. TEDUGLUTIDE [Suspect]
     Active Substance: TEDUGLUTIDE
     Indication: Short-bowel syndrome
     Dosage: 0.28 MILLILITER, QD
     Route: 058
     Dates: start: 20210228
  4. TEDUGLUTIDE [Suspect]
     Active Substance: TEDUGLUTIDE
     Indication: Short-bowel syndrome
     Dosage: 0.28 MILLILITER, QD
     Route: 058
     Dates: start: 20210228
  5. TEDUGLUTIDE [Suspect]
     Active Substance: TEDUGLUTIDE
     Dosage: 0.28 MILLILITER, QD
     Route: 058
     Dates: start: 20210301, end: 20230515
  6. TEDUGLUTIDE [Suspect]
     Active Substance: TEDUGLUTIDE
     Dosage: 0.28 MILLILITER, QD
     Route: 058
     Dates: start: 20210301, end: 20230515
  7. TEDUGLUTIDE [Suspect]
     Active Substance: TEDUGLUTIDE
     Dosage: 0.28 MILLILITER, QD
     Route: 058
     Dates: start: 20210301, end: 20230515
  8. TEDUGLUTIDE [Suspect]
     Active Substance: TEDUGLUTIDE
     Dosage: 0.28 MILLILITER, QD
     Route: 058
     Dates: start: 20210301, end: 20230515
  9. IRON [Concomitant]
     Active Substance: IRON
     Dosage: UNK
     Dates: start: 20210309
  10. WARFARIN [Concomitant]
     Active Substance: WARFARIN
  11. TAUROLIDINE [Concomitant]
     Active Substance: TAUROLIDINE
     Dosage: 1.5 MILLILITER, QD
  12. HYDRALYTE ELECTROLYTE [Concomitant]
     Dosage: 5 DOSAGE FORM, QD
     Route: 065
  13. SODIBIC [Concomitant]
     Indication: Hyperchlorhydria
     Dosage: 1 DOSAGE FORM, QD
  14. SODIBIC [Concomitant]
     Indication: Hyperkalaemia
  15. AQUASOL A [Concomitant]
     Active Substance: VITAMIN A PALMITATE
     Dosage: 100000 INTERNATIONAL UNIT
     Route: 030
  16. WARFARIN SODIUM [Concomitant]
     Active Substance: WARFARIN SODIUM
     Indication: Thrombosis
     Dosage: 5.5 MILLIGRAM, QD
  17. CREON [Concomitant]
     Active Substance: PANCRELIPASE AMYLASE\PANCRELIPASE LIPASE\PANCRELIPASE PROTEASE
     Indication: Enzyme supplementation
     Dosage: 50000 INTERNATIONAL UNIT, TID
  18. ASPIRIN [Concomitant]
     Active Substance: ASPIRIN
     Indication: Prophylaxis
     Dosage: 100 MILLIGRAM, QD
  19. ASPIRIN [Concomitant]
     Active Substance: ASPIRIN
     Indication: Myocardial infarction
  20. ASPIRIN [Concomitant]
     Active Substance: ASPIRIN
     Indication: Cerebrovascular accident
  21. ASPIRIN [Concomitant]
     Active Substance: ASPIRIN
     Indication: Thrombosis
  22. ENDEP [Concomitant]
     Active Substance: AMITRIPTYLINE HYDROCHLORIDE
     Indication: Mood altered
     Dosage: 10 MILLIGRAM, QD
  23. LIPITOR [Concomitant]
     Active Substance: ATORVASTATIN CALCIUM
     Indication: Prophylaxis
     Dosage: 40 MILLIGRAM, QD
  24. LIPITOR [Concomitant]
     Active Substance: ATORVASTATIN CALCIUM
     Indication: Myocardial infarction
  25. LIPITOR [Concomitant]
     Active Substance: ATORVASTATIN CALCIUM
     Indication: Cerebrovascular accident
  26. LIPITOR [Concomitant]
     Active Substance: ATORVASTATIN CALCIUM
     Indication: Blood cholesterol abnormal
  27. CARBIMAZOLE [Concomitant]
     Active Substance: CARBIMAZOLE
     Indication: Hyperthyroidism
     Dosage: 5 MILLIGRAM, BID
  28. VITAMINS [Concomitant]
     Active Substance: VITAMINS
     Indication: Mineral supplementation
     Dosage: 1 DOSAGE FORM, QD
  29. VITAMINS [Concomitant]
     Active Substance: VITAMINS
     Indication: Vitamin supplementation
  30. Codalgin [Concomitant]
     Indication: Pain
     Dosage: UNK
  31. Paxam [Concomitant]
     Indication: Sleep terror
     Dosage: 0.5 MILLIGRAM, QD
     Route: 065
  32. SODIUM CHLORIDE [Concomitant]
     Active Substance: SODIUM CHLORIDE
     Indication: Fluid replacement
     Dosage: 1.5 LITER
     Route: 042

REACTIONS (13)
  - Duodenal polyp [Not Recovered/Not Resolved]
  - Abdominal discomfort [Not Recovered/Not Resolved]
  - Abdominal distension [Not Recovered/Not Resolved]
  - Drug ineffective [Unknown]
  - Cystitis interstitial [Not Recovered/Not Resolved]
  - Iron deficiency [Unknown]
  - Weight gain poor [Unknown]
  - Malaise [Recovering/Resolving]
  - Pain [Recovering/Resolving]
  - Weight decreased [Recovering/Resolving]
  - Headache [Recovering/Resolving]
  - Influenza [Recovering/Resolving]
  - Decreased appetite [Recovering/Resolving]

NARRATIVE: CASE EVENT DATE: 20210317
